FAERS Safety Report 5219173-6 (Version None)
Quarter: 2007Q1

REPORT INFORMATION
  Report Type: 
  Country: None (occurrence: None)
  Receive Date: 20070125
  Receipt Date: 20070119
  Transmission Date: 20070707
  Serious: Yes (Hospitalization)
  Sender: FDA-Public Use
  Company Number: IT-GLAXOSMITHKLINE-B0455596A

PATIENT
  Age: 79 Year
  Sex: Female

DRUGS (4)
  1. LANOXIN [Suspect]
     Dates: start: 20061229, end: 20070105
  2. ASPIRIN [Concomitant]
     Dosage: 100MG PER DAY
     Dates: start: 20061229, end: 20070105
  3. FRUSEMIDE [Concomitant]
     Route: 048
     Dates: start: 20061229, end: 20070105
  4. SPIRONOLACTONE + FRUSEMIDE [Concomitant]
     Route: 048
     Dates: start: 20061229, end: 20070105

REACTIONS (2)
  - CHEST PAIN [None]
  - DYSPNOEA [None]
